FAERS Safety Report 12408909 (Version 1)
Quarter: 2016Q2

REPORT INFORMATION
  Report Type: Report from Study
  Country: US (occurrence: US)
  Receive Date: 20160526
  Receipt Date: 20160526
  Transmission Date: 20160815
  Serious: Yes (Other)
  Sender: FDA-Public Use
  Company Number: US-AMGEN-USASL2016066325

PATIENT
  Age: 51 Year
  Sex: Female

DRUGS (2)
  1. ENBREL [Suspect]
     Active Substance: ETANERCEPT
     Indication: PSORIATIC ARTHROPATHY
     Dosage: UNK
     Route: 065
     Dates: start: 201602
  2. ARAVA [Concomitant]
     Active Substance: LEFLUNOMIDE
     Dosage: UNK

REACTIONS (7)
  - Depression [Unknown]
  - Malaise [Unknown]
  - Fatigue [Unknown]
  - Muscle fatigue [Unknown]
  - Tuberculosis [Unknown]
  - Pain [Unknown]
  - Pain in extremity [Unknown]

NARRATIVE: CASE EVENT DATE: 2016
